FAERS Safety Report 17388334 (Version 1)
Quarter: 2020Q1

REPORT INFORMATION
  Report Type: Spontaneous
  Country: FI (occurrence: FI)
  Receive Date: 20200206
  Receipt Date: 20200206
  Transmission Date: 20200409
  Serious: Yes (Other)
  Sender: FDA-Public Use
  Company Number: FI-JAZZ-2020-FI-001563

PATIENT

DRUGS (2)
  1. ASPARAGINASE [Suspect]
     Active Substance: ASPARAGINASE
     Dosage: 6500 IU/M2 AT 3-4-DAY INTERVALS FOUR TIMES ON DAYS 36-46 IN THE NOPHO ALL2000 PROTOCOL
  2. ERWINASE [Suspect]
     Active Substance: ASPARAGINASE ERWINIA CHRYSANTHEMI
     Indication: ACUTE LYMPHOCYTIC LEUKAEMIA
     Dosage: 30000 IU/M2 ON DAYS 37-46 IN THE ALL92 PROTOCOL
     Route: 030

REACTIONS (1)
  - Cerebral venous sinus thrombosis [Unknown]
